FAERS Safety Report 24351368 (Version 2)
Quarter: 2024Q4

REPORT INFORMATION
  Report Type: Spontaneous
  Country: US (occurrence: US)
  Receive Date: 20240923
  Receipt Date: 20241021
  Transmission Date: 20250114
  Serious: Yes (Other)
  Sender: UCB
  Company Number: US-UCBSA-2024047340

PATIENT
  Sex: Female

DRUGS (1)
  1. CIMZIA [Suspect]
     Active Substance: CERTOLIZUMAB PEGOL
     Indication: Crohn^s disease
     Dosage: 400 MILLIGRAM, EV 4 WEEKS
     Route: 058
     Dates: start: 202408

REACTIONS (4)
  - Crohn^s disease [Unknown]
  - Rheumatoid arthritis [Unknown]
  - Therapy interrupted [Unknown]
  - Insurance issue [Unknown]

NARRATIVE: CASE EVENT DATE: 20240101
